FAERS Safety Report 7833405-7 (Version None)
Quarter: 2011Q4

REPORT INFORMATION
  Report Type: 
  Country: None (occurrence: None)
  Receive Date: 20111024
  Receipt Date: 20111017
  Transmission Date: 20120403
  Serious: Yes (Other)
  Sender: FDA-Public Use
  Company Number: JP-PFIZER INC-2011166406

PATIENT
  Age: 54 Year
  Sex: Male
  Weight: 54 kg

DRUGS (7)
  1. PENTASA [Concomitant]
     Indication: CROHN'S DISEASE
  2. CODEINE PHOSPHATE [Concomitant]
     Dosage: UNK
     Route: 048
     Dates: start: 20110614, end: 20110728
  3. IMURAN [Concomitant]
     Indication: CROHN'S DISEASE
  4. ZYVOX [Suspect]
     Indication: POST PROCEDURAL INFECTION
     Dosage: 600 MG, 2X/DAY
     Route: 041
     Dates: start: 20110716, end: 20110722
  5. NORTRIPTYLINE HCL [Suspect]
     Indication: INTERVERTEBRAL DISC PROTRUSION
     Dosage: 20 MG, 1X/DAY
     Route: 048
     Dates: start: 20110602, end: 20110722
  6. LYRICA [Concomitant]
     Indication: INTERVERTEBRAL DISC PROTRUSION
     Dosage: 75 MG, 2X/DAY
     Route: 048
     Dates: start: 20110603, end: 20110901
  7. CODEINE PHOSPHATE [Concomitant]
     Indication: INTERVERTEBRAL DISC PROTRUSION
     Dosage: 30 MG, 1X/DAY
     Route: 048
     Dates: start: 20110606, end: 20110613

REACTIONS (1)
  - SEROTONIN SYNDROME [None]
